FAERS Safety Report 21655381 (Version 2)
Quarter: 2023Q2

REPORT INFORMATION
  Report Type: Report from Study
  Country: US (occurrence: US)
  Receive Date: 20221129
  Receipt Date: 20230418
  Transmission Date: 20230721
  Serious: No
  Sender: FDA-Public Use
  Company Number: US-ABBVIE-4183556

PATIENT
  Sex: Female

DRUGS (3)
  1. SKYRIZI [Suspect]
     Active Substance: RISANKIZUMAB-RZAA
     Indication: Psoriasis
     Dosage: 150MG/ML PEN?FORM STRENGTH: 150 MILLIGRAM?DRUG END DATE: 2022
     Route: 058
     Dates: start: 20220831
  2. SKYRIZI [Suspect]
     Active Substance: RISANKIZUMAB-RZAA
     Indication: Psoriatic arthropathy
     Dosage: 150 MG/ML PEN?FORM STRENGTH: 150 MILLIGRAM
     Route: 058
     Dates: start: 2022, end: 2022
  3. SKYRIZI [Suspect]
     Active Substance: RISANKIZUMAB-RZAA
     Dosage: 150MG/ML PEN?FORM STRENGTH: 150 MILLIGRAM
     Route: 058
     Dates: start: 2022

REACTIONS (4)
  - Psoriasis [Unknown]
  - Impaired work ability [Unknown]
  - Headache [Unknown]
  - General symptom [Unknown]

NARRATIVE: CASE EVENT DATE: 20220101
